FAERS Safety Report 6258486-6 (Version None)
Quarter: 2009Q3

REPORT INFORMATION
  Report Type: 
  Country: None (occurrence: None)
  Receive Date: 20090702
  Receipt Date: 20090622
  Transmission Date: 20100115
  Serious: Yes (Other)
  Sender: FDA-Public Use
  Company Number: 306350

PATIENT
  Age: 53 Year
  Sex: Female

DRUGS (1)
  1. PHENYTOIN [Suspect]
     Indication: CONVULSION PROPHYLAXIS
     Dosage: 1000 MG, INTRAVENOUS; 100 MG; 300 MG;
     Route: 042

REACTIONS (6)
  - APHASIA [None]
  - BLOOD ALBUMIN DECREASED [None]
  - DRUG TOXICITY [None]
  - HYPERGLYCAEMIA [None]
  - LETHARGY [None]
  - PYREXIA [None]
